FAERS Safety Report 20026172 (Version 3)
Quarter: 2021Q4

REPORT INFORMATION
  Report Type: Spontaneous
  Country: US (occurrence: US)
  Receive Date: 20211102
  Receipt Date: 20211112
  Transmission Date: 20220303
  Serious: Yes (Other)
  Sender: FDA-Public Use
  Company Number: US-SUNOVION-2021SUN004165

PATIENT
  Age: 31 Year
  Sex: Female

DRUGS (1)
  1. APTIOM [Suspect]
     Active Substance: ESLICARBAZEPINE ACETATE
     Dosage: 800 MG, QD
     Route: 048

REACTIONS (6)
  - Seizure [Unknown]
  - Generalised tonic-clonic seizure [Unknown]
  - Sleep disorder [Unknown]
  - Stress [Unknown]
  - Maternal exposure timing unspecified [Unknown]
  - Product dose omission issue [Unknown]
